FAERS Safety Report 10003983 (Version 1)
Quarter: 2014Q1

REPORT INFORMATION
  Report Type: Spontaneous
  Country: US (occurrence: US)
  Receive Date: 20140312
  Receipt Date: 20140312
  Transmission Date: 20141002
  Serious: No
  Sender: FDA-Public Use
  Company Number: US-ABBVIE-13P-163-1164475-00

PATIENT
  Sex: Female
  Weight: 108.96 kg

DRUGS (4)
  1. DEPAKOTE [Suspect]
     Dosage: 500 IN AM, 1000 QHS
     Dates: start: 1996, end: 2012
  2. DEPAKOTE [Suspect]
     Dates: start: 2012
  3. OTC DIURETIC [Interacting]
     Indication: JOINT SWELLING
     Dates: start: 201206, end: 201207
  4. DEPAKOTE [Suspect]
     Indication: BIPOLAR DISORDER
     Dosage: 500 IN AM + AT LUNCH THEN 1000 QHS
     Dates: start: 1996, end: 1996

REACTIONS (7)
  - Weight increased [Not Recovered/Not Resolved]
  - Joint swelling [Recovered/Resolved]
  - Mania [Recovered/Resolved]
  - Thinking abnormal [Recovered/Resolved]
  - Sleep disorder [Recovered/Resolved]
  - Joint swelling [Recovered/Resolved]
  - Drug interaction [Recovered/Resolved]
